FAERS Safety Report 6827682-9 (Version None)
Quarter: 2010Q3

REPORT INFORMATION
  Report Type: 
  Country: None (occurrence: None)
  Receive Date: 20100709
  Receipt Date: 20070122
  Transmission Date: 20110219
  Serious: Yes (Other)
  Sender: FDA-Public Use
  Company Number: US-PFIZER INC-2007007081

PATIENT
  Sex: Male
  Weight: 83.9 kg

DRUGS (2)
  1. CHANTIX [Suspect]
     Indication: SMOKING CESSATION THERAPY
  2. WARFARIN SODIUM [Concomitant]

REACTIONS (5)
  - ABNORMAL DREAMS [None]
  - DYSPNOEA [None]
  - FATIGUE [None]
  - INCREASED APPETITE [None]
  - SWELLING FACE [None]
